FAERS Safety Report 17081525 (Version 1)
Quarter: 2019Q4

REPORT INFORMATION
  Report Type: Spontaneous
  Country: US (occurrence: US)
  Receive Date: 20191126
  Receipt Date: 20191126
  Transmission Date: 20200122
  Serious: Yes (Disabling, Other)
  Sender: FDA-Public Use
  Company Number: None

PATIENT
  Age: 74 Year
  Sex: Male
  Weight: 130.5 kg

DRUGS (13)
  1. DILTIAZEM ER 240/24 [Concomitant]
  2. ASPIRIN 81MG [Concomitant]
     Active Substance: ASPIRIN
  3. PEN NEEDLES FOR TOUJEO, 1 PER DAY [Concomitant]
  4. RAPIDFLO 4MG [Concomitant]
  5. CHLORPHENIRAMINE 12 MG [Concomitant]
     Dosage: 2 PER DAY
  6. GLIMEPIRIDE 4MG 2 PER DAY [Concomitant]
  7. LISINOPRIL. [Concomitant]
     Active Substance: LISINOPRIL
  8. FLONASE AS NEEDED [Concomitant]
  9. ACCU-CHECK [Concomitant]
     Dosage: 4 STRIPS PER DAY
  10. JARDIANCE [Suspect]
     Active Substance: EMPAGLIFLOZIN
     Indication: TYPE 2 DIABETES MELLITUS
  11. ATORVASTATIN 40MG [Concomitant]
     Active Substance: ATORVASTATIN
  12. NP THYROID [Concomitant]
     Active Substance: LEVOTHYROXINE\LIOTHYRONINE
  13. JANUVIA [Concomitant]
     Active Substance: SITAGLIPTIN PHOSPHATE

REACTIONS (4)
  - Cystitis [None]
  - Fungal infection [None]
  - Urinary tract infection [None]
  - Renal impairment [None]

NARRATIVE: CASE EVENT DATE: 20190512
